FAERS Safety Report 4876897-8 (Version None)
Quarter: 2006Q1

REPORT INFORMATION
  Report Type: 
  Country: None (occurrence: None)
  Receive Date: 20060109
  Receipt Date: 20060109
  Transmission Date: 20060701
  Serious: Yes (Death, Hospitalization)
  Sender: FDA-Public Use
  Company Number: None

PATIENT
  Sex: Male
  Weight: 58.9676 kg

DRUGS (1)
  1. ADDERALL 5 [Suspect]
     Indication: ATTENTION DEFICIT/HYPERACTIVITY DISORDER
     Dosage: 1/2 OF LOWEST DOSAGE TABLET ONCE IN AM PO
     Route: 048

REACTIONS (3)
  - BRAIN DEATH [None]
  - CARDIAC ARREST [None]
  - SYNCOPE [None]
